FAERS Safety Report 24443703 (Version 2)
Quarter: 2024Q4

REPORT INFORMATION
  Report Type: Report from Study
  Country: CA (occurrence: CA)
  Receive Date: 20241016
  Receipt Date: 20241017
  Transmission Date: 20250115
  Serious: No
  Sender: ROCHE
  Company Number: CA-ROCHE-1915052

PATIENT
  Age: 46 Year
  Sex: Female

DRUGS (12)
  1. RITUXAN [Suspect]
     Active Substance: RITUXIMAB
     Indication: Rheumatoid arthritis
     Route: 042
     Dates: start: 20101111
  2. RITUXAN [Suspect]
     Active Substance: RITUXIMAB
     Dosage: INFUSION #13
     Route: 042
     Dates: start: 20170330
  3. RITUXAN [Suspect]
     Active Substance: RITUXIMAB
     Route: 042
  4. DIPHENHYDRAMINE HYDROCHLORIDE [Concomitant]
     Active Substance: DIPHENHYDRAMINE HYDROCHLORIDE
     Indication: Premedication
     Route: 048
  5. ACETAMINOPHEN [Concomitant]
     Active Substance: ACETAMINOPHEN
     Indication: Premedication
     Route: 048
  6. METHYLPREDNISOLONE [Concomitant]
     Active Substance: METHYLPREDNISOLONE
     Indication: Premedication
     Route: 042
  7. VENTOLIN [Concomitant]
     Active Substance: ALBUTEROL SULFATE
  8. TYLENOL [Concomitant]
     Active Substance: ACETAMINOPHEN
     Indication: Premedication
     Route: 048
     Dates: start: 20101111
  9. SOLU-MEDROL [Concomitant]
     Active Substance: METHYLPREDNISOLONE SODIUM SUCCINATE
     Indication: Premedication
     Route: 042
     Dates: start: 20101111
  10. PREMARIN [Concomitant]
     Active Substance: ESTROGENS, CONJUGATED
     Dosage: FREQUENCY TEXT:PRN
  11. FLONASE [Concomitant]
     Active Substance: FLUTICASONE PROPIONATE
  12. CORTISONE [Concomitant]
     Active Substance: CORTISONE
     Indication: Eczema
     Dosage: FREQUENCY TEXT:PRN
     Route: 061

REACTIONS (4)
  - Infusion related reaction [Recovered/Resolved]
  - Blood pressure diastolic abnormal [Unknown]
  - Infusion related reaction [Recovering/Resolving]
  - Blood pressure fluctuation [Unknown]

NARRATIVE: CASE EVENT DATE: 20170330
